FAERS Safety Report 4691689-0 (Version None)
Quarter: 2005Q2

REPORT INFORMATION
  Report Type: 
  Country: None (occurrence: None)
  Receive Date: 20050608
  Receipt Date: 20040420
  Transmission Date: 20051028
  Serious: Yes (Other)
  Sender: FDA-Public Use
  Company Number: 360308

PATIENT
  Age: 26 Year
  Sex: Female
  Weight: 68 kg

DRUGS (1)
  1. ACCUTANE [Suspect]
     Indication: DRUG USE FOR UNKNOWN INDICATION
     Dosage: 120 MG 1 PER DAY ORAL
     Route: 048
     Dates: start: 20020729, end: 20021216

REACTIONS (3)
  - DEPRESSION [None]
  - MOOD ALTERED [None]
  - PREMENSTRUAL SYNDROME [None]
